FAERS Safety Report 9925953 (Version 1)
Quarter: 2014Q1

REPORT INFORMATION
  Report Type: Spontaneous
  Country: US (occurrence: US)
  Receive Date: 20140226
  Receipt Date: 20140226
  Transmission Date: 20141002
  Serious: No
  Sender: FDA-Public Use
  Company Number: US-BRACCO-009292

PATIENT
  Age: 37 Year
  Sex: Female

DRUGS (7)
  1. HYDROMORPHONE [Concomitant]
  2. ISOVUE 300 [Suspect]
     Indication: SPINAL MYELOGRAM
     Route: 037
     Dates: start: 20130301, end: 20130301
  3. LORAZEPAM [Concomitant]
  4. ALPRAZOLAM [Concomitant]
  5. LOVENOX [Concomitant]
  6. COUMADIN [Concomitant]
  7. FENTANYL [Concomitant]
     Route: 062

REACTIONS (1)
  - Incorrect route of drug administration [Recovered/Resolved]
